FAERS Safety Report 9149270 (Version 1)
Quarter: 2013Q1

REPORT INFORMATION
  Report Type: Spontaneous
  Country: US (occurrence: US)
  Receive Date: 20130308
  Receipt Date: 20130308
  Transmission Date: 20140127
  Serious: Yes (Other)
  Sender: FDA-Public Use
  Company Number: US-PFIZER INC-2013077218

PATIENT
  Age: 44 Year
  Sex: Male
  Weight: 258.05 kg

DRUGS (1)
  1. VIAGRA [Suspect]
     Indication: ERECTILE DYSFUNCTION
     Dosage: 40 MG, AS NEEDED
     Route: 048
     Dates: start: 201302

REACTIONS (5)
  - Dysuria [Unknown]
  - Penile swelling [Unknown]
  - Penis disorder [Unknown]
  - Penile pain [Unknown]
  - Penis disorder [Unknown]
